FAERS Safety Report 6859910-8 (Version None)
Quarter: 2010Q3

REPORT INFORMATION
  Report Type: 
  Country: None (occurrence: None)
  Receive Date: 20100720
  Receipt Date: 20100708
  Transmission Date: 20110219
  Serious: Yes (Death, Hospitalization)
  Sender: FDA-Public Use
  Company Number: ES-WYE-H16082510

PATIENT
  Age: 32 Year
  Sex: Male

DRUGS (4)
  1. TIGECYCLINE [Suspect]
     Indication: ACINETOBACTER INFECTION
     Dosage: 100 MG LOADING DOSE, THEN 50 MG Q12H
     Route: 042
  2. TIGECYCLINE [Suspect]
     Indication: PNEUMONIA
  3. RIFAMPICIN [Concomitant]
     Indication: PNEUMONIA
     Dosage: UNKNOWN
     Route: 042
  4. RIFAMPICIN [Concomitant]
     Indication: ACINETOBACTER INFECTION

REACTIONS (2)
  - LUNG INFECTION PSEUDOMONAL [None]
  - SUPERINFECTION [None]
